FAERS Safety Report 7387906-9 (Version None)
Quarter: 2011Q2

REPORT INFORMATION
  Report Type: 
  Country: None (occurrence: None)
  Receive Date: 20110401
  Receipt Date: 20110318
  Transmission Date: 20111010
  Serious: Yes (Other)
  Sender: FDA-Public Use
  Company Number: US-ASTRAZENECA-2007UW17791

PATIENT
  Sex: Female
  Weight: 99.8 kg

DRUGS (11)
  1. SEROQUEL [Suspect]
     Dosage: 50 MG TO 600 MG
     Route: 048
     Dates: start: 20041201, end: 20060601
  2. SEROQUEL [Suspect]
     Dosage: 50 MG TO 600 MG
     Route: 048
     Dates: start: 20041201, end: 20060601
  3. SEROQUEL [Suspect]
     Dosage: 50 MG TO 600 MG
     Route: 048
     Dates: start: 20041201, end: 20060601
  4. SEROQUEL [Suspect]
     Indication: BIPOLAR DISORDER
     Dosage: 25 MG TO 300 MG
     Route: 048
     Dates: start: 20051119
  5. EFFEXOR XR [Concomitant]
     Indication: DEPRESSION
     Dates: start: 20051119
  6. GEODON [Concomitant]
     Dates: start: 20050101, end: 20060101
  7. CLONAZEPAM [Concomitant]
     Indication: DEPRESSION
  8. SEROQUEL [Suspect]
     Indication: DEPRESSION
     Dosage: 25 MG TO 300 MG
     Route: 048
     Dates: start: 20051119
  9. HALDOL [Concomitant]
     Dates: start: 20051119, end: 20060523
  10. EFFEXOR XR [Concomitant]
     Dates: start: 20050101, end: 20060101
  11. SEROQUEL [Suspect]
     Indication: ANXIETY
     Dosage: 25 MG TO 300 MG
     Route: 048
     Dates: start: 20051119

REACTIONS (2)
  - TYPE 2 DIABETES MELLITUS [None]
  - DIABETIC NEUROPATHY [None]
